FAERS Safety Report 5589689-1 (Version None)
Quarter: 2008Q1

REPORT INFORMATION
  Report Type: 
  Country: None (occurrence: None)
  Receive Date: 20080114
  Receipt Date: 20080103
  Transmission Date: 20080703
  Serious: Yes (Other)
  Sender: FDA-Public Use
  Company Number: B0477924A

PATIENT
  Sex: Male

DRUGS (1)
  1. PAROXETINE [Suspect]
     Indication: DRUG USE FOR UNKNOWN INDICATION
     Dates: start: 20050728

REACTIONS (11)
  - AGGRESSION [None]
  - AGITATION [None]
  - DEPRESSED MOOD [None]
  - DRUG WITHDRAWAL SYNDROME [None]
  - EMOTIONAL DISTRESS [None]
  - HEADACHE [None]
  - NAUSEA [None]
  - PANIC ATTACK [None]
  - SUICIDAL IDEATION [None]
  - TEARFULNESS [None]
  - TREMOR [None]
